FAERS Safety Report 5275264-5 (Version None)
Quarter: 2007Q1

REPORT INFORMATION
  Report Type: 
  Country: None (occurrence: None)
  Receive Date: 20061213
  Receipt Date: 20060328
  Transmission Date: 20070707
  Serious: No
  Sender: FDA-Public Use
  Company Number: 2005UW13458

PATIENT
  Age: 16 Year
  Sex: Female
  Weight: 85.2762 kg

DRUGS (7)
  1. SEROQUEL [Suspect]
     Indication: AFFECTIVE DISORDER
     Dosage: 25 MG DAILY PO
     Route: 048
     Dates: start: 20040610
  2. SEROQUEL [Suspect]
     Indication: AFFECTIVE DISORDER
     Dosage: 400 MG DAILY
     Dates: start: 20050901
  3. SEROQUEL [Suspect]
     Indication: AFFECTIVE DISORDER
     Dosage: 700 MG DAILY PO
     Route: 048
     Dates: start: 20050413
  4. SEROQUEL [Suspect]
     Indication: AFFECTIVE DISORDER
     Dosage: 600 MG DAILY PO
     Route: 048
     Dates: end: 20031002
  5. PROZAC [Concomitant]
  6. PROPRANOLOL [Concomitant]
  7. TRAZODONE HCL [Concomitant]

REACTIONS (2)
  - CATARACT [None]
  - CATARACT CORTICAL [None]
